FAERS Safety Report 19386219 (Version 1)
Quarter: 2021Q2

REPORT INFORMATION
  Report Type: Report from Study
  Country: KR (occurrence: KR)
  Receive Date: 20210608
  Receipt Date: 20210608
  Transmission Date: 20210717
  Serious: Yes (Death, Other)
  Sender: FDA-Public Use
  Company Number: KR-AUROBINDO-AUR-APL-2019-066920

PATIENT
  Age: 73 Year
  Sex: Male

DRUGS (8)
  1. PRALATREXATE [Suspect]
     Active Substance: PRALATREXATE
     Indication: T-CELL LYMPHOMA RECURRENT
  2. PRALATREXATE [Suspect]
     Active Substance: PRALATREXATE
     Indication: PERIPHERAL T-CELL LYMPHOMA UNSPECIFIED RECURRENT
  3. LEUCOVORIN. [Concomitant]
     Active Substance: LEUCOVORIN
     Indication: MUCOSAL INFLAMMATION
     Dosage: 45 MILLIGRAM, DAILY
     Route: 065
  4. BORTEZOMIB. [Suspect]
     Active Substance: BORTEZOMIB
     Indication: T-CELL LYMPHOMA RECURRENT
     Dosage: 1.3 MILLIGRAM/SQ. METER
     Route: 042
  5. PRALATREXATE [Suspect]
     Active Substance: PRALATREXATE
     Indication: T-CELL LYMPHOMA REFRACTORY
     Dosage: 15 MILLIGRAM/SQ. METER, 1 WEEK, THREE WEEKLY DOSES, WITH 1 WEEK REST. REPEATED EVERY 28 DAYS
     Route: 042
  6. BORTEZOMIB. [Suspect]
     Active Substance: BORTEZOMIB
     Indication: PERIPHERAL T-CELL LYMPHOMA UNSPECIFIED RECURRENT
  7. VITAMIN B12 [Concomitant]
     Active Substance: CYANOCOBALAMIN
     Indication: MUCOSAL INFLAMMATION
     Dosage: 1 MILLIGRAM, WITHIN 7 DAYS BEFORE INITIATION OF EVERY CYCLE
     Route: 030
  8. BORTEZOMIB. [Suspect]
     Active Substance: BORTEZOMIB
     Indication: T-CELL LYMPHOMA REFRACTORY

REACTIONS (10)
  - Thrombocytopenia [Unknown]
  - Herpes zoster [Unknown]
  - T-cell lymphoma [Fatal]
  - Mucosal inflammation [Unknown]
  - Infection [Fatal]
  - Disease progression [Unknown]
  - Decreased appetite [Unknown]
  - Off label use [Unknown]
  - Neuropathy peripheral [Unknown]
  - Neutropenia [Unknown]
